FAERS Safety Report 25643977 (Version 1)
Quarter: 2025Q3

REPORT INFORMATION
  Report Type: Spontaneous
  Country: CN (occurrence: CN)
  Receive Date: 20250805
  Receipt Date: 20250805
  Transmission Date: 20251020
  Serious: Yes (Other)
  Sender: RANBAXY
  Company Number: CN-SUN PHARMACEUTICAL INDUSTRIES LTD-2025R1-520247

PATIENT
  Sex: Male
  Weight: 19 kg

DRUGS (3)
  1. RISPERIDONE [Suspect]
     Active Substance: RISPERIDONE
     Indication: Separation anxiety disorder
     Dosage: 0.25 MILLILITER, DAILY
     Route: 048
  2. RISPERIDONE [Suspect]
     Active Substance: RISPERIDONE
     Indication: Attention deficit hyperactivity disorder
     Dosage: 0.5 MILLILITER, DAILY
     Route: 048
  3. RISPERIDONE [Suspect]
     Active Substance: RISPERIDONE
     Dosage: 0.4 MILLILITER, DAILY
     Route: 048

REACTIONS (2)
  - Urinary incontinence [Recovered/Resolved]
  - Enuresis [Recovered/Resolved]
